FAERS Safety Report 14537530 (Version 1)
Quarter: 2018Q1

REPORT INFORMATION
  Report Type: Spontaneous
  Country: GB (occurrence: GB)
  Receive Date: 20180215
  Receipt Date: 20180215
  Transmission Date: 20180509
  Serious: Yes (Hospitalization, Other)
  Sender: FDA-Public Use
  Company Number: GB-009507513-1802GBR005549

PATIENT
  Age: 48 Year
  Sex: Male

DRUGS (8)
  1. ZAPONEX [Suspect]
     Active Substance: CLOZAPINE
     Indication: SCHIZOPHRENIA
     Dosage: UNK
     Route: 048
     Dates: start: 20160915, end: 201801
  2. DIAZEPAM. [Suspect]
     Active Substance: DIAZEPAM
     Indication: NEURALGIA
     Dosage: REGULAR DOSE: 5MG PRN
  3. LAXIDO [Concomitant]
     Active Substance: POLYETHYLENE GLYCOL 3350\POTASSIUM CHLORIDE\SODIUM BICARBONATE\SODIUM CHLORIDE
     Indication: CONSTIPATION
     Route: 048
  4. ZAPONEX [Suspect]
     Active Substance: CLOZAPINE
     Dosage: 8.75 G
     Route: 048
  5. ACETAMINOPHEN. [Concomitant]
     Active Substance: ACETAMINOPHEN
     Indication: OSTEOARTHRITIS
     Dosage: AS NECESSARY
  6. SENNA [Concomitant]
     Active Substance: SENNA LEAF\SENNOSIDES\SENNOSIDES A AND B
     Indication: CONSTIPATION
     Route: 048
  7. MIRTAZAPINE. [Suspect]
     Active Substance: MIRTAZAPINE
     Indication: DEPRESSION
     Dosage: REGULAR DOSE: 45MG ONCE DAILY
     Route: 048
  8. AMITRIPTYLINE HYDROCHLORIDE. [Suspect]
     Active Substance: AMITRIPTYLINE HYDROCHLORIDE
     Indication: FIBROMYALGIA
     Dosage: REGULAR DOSE: 25-50 MG PRN

REACTIONS (3)
  - Influenza [Recovering/Resolving]
  - Suicide attempt [Recovered/Resolved]
  - Intentional overdose [Recovering/Resolving]

NARRATIVE: CASE EVENT DATE: 20180127
